FAERS Safety Report 9113918 (Version 1)
Quarter: 2013Q1

REPORT INFORMATION
  Report Type: Spontaneous
  Country: US (occurrence: US)
  Receive Date: 20130129
  Receipt Date: 20130129
  Transmission Date: 20140127
  Serious: No
  Sender: FDA-Public Use
  Company Number: US-PFIZER INC-2013034960

PATIENT
  Age: 81 Year
  Sex: Male
  Weight: 102 kg

DRUGS (8)
  1. LYRICA [Suspect]
     Indication: NEUROPATHY PERIPHERAL
     Dosage: UNK (OFF AND ON )
     Dates: start: 2008, end: 201301
  2. PLAVIX [Concomitant]
     Indication: CARDIAC DISORDER
     Dosage: 75 MG, DAILY
  3. ISOSORBIDE [Concomitant]
     Indication: CARDIAC DISORDER
     Dosage: 120 MG, DAILY
  4. TOPROL [Concomitant]
     Indication: CARDIAC DISORDER
     Dosage: 100 MG, DAILY
  5. NEXIUM [Concomitant]
     Indication: CARDIAC DISORDER
     Dosage: 40 MG, DAILY
  6. AMLODIPINE [Concomitant]
     Indication: CARDIAC DISORDER
     Dosage: 10 MG, DAILY
  7. OXYCODONE [Concomitant]
     Indication: CARDIAC DISORDER
     Dosage: 10 MG, 4X/DAY
  8. LANTUS [Concomitant]
     Indication: DIABETES MELLITUS
     Dosage: 30 IU, DAILY

REACTIONS (2)
  - Rash [Recovered/Resolved]
  - Arthralgia [Recovered/Resolved]
